FAERS Safety Report 9094277 (Version 1)
Quarter: 2013Q1

REPORT INFORMATION
  Report Type: Spontaneous
  Country: US (occurrence: US)
  Receive Date: 20130219
  Receipt Date: 20130219
  Transmission Date: 20140127
  Serious: Yes (Hospitalization)
  Sender: FDA-Public Use
  Company Number: US-BAYER-2013-020200

PATIENT
  Age: 39 Year
  Sex: Female
  Weight: 54.88 kg

DRUGS (10)
  1. YAZ [Suspect]
  2. VYVANSE [Concomitant]
     Dosage: 20 MG, UNK
     Route: 048
     Dates: start: 20120122, end: 20120211
  3. ALPRAZOLAM [Concomitant]
     Dosage: 0.25 MG, UNK
     Route: 048
     Dates: start: 20120211
  4. HYDROXYZINE HCL [Concomitant]
     Dosage: 25 MG, UNK
     Route: 048
     Dates: start: 20120319
  5. KETOROLAC [Concomitant]
     Dosage: 10 MG, UNK
     Route: 048
     Dates: start: 20120320
  6. PROMETHAZINE [Concomitant]
     Dosage: 12.5 MG, UNK
     Route: 048
     Dates: start: 20120320
  7. XANAX [Concomitant]
  8. ATARAX [Concomitant]
     Indication: DYSPNOEA
  9. AUGMENTIN [Concomitant]
  10. TYLENOL [Concomitant]

REACTIONS (2)
  - Pulmonary embolism [None]
  - Deep vein thrombosis [Recovered/Resolved]
